FAERS Safety Report 10399881 (Version 3)
Quarter: 2015Q1

REPORT INFORMATION
  Report Type: Spontaneous
  Country: US (occurrence: US)
  Receive Date: 20140821
  Receipt Date: 20150310
  Transmission Date: 20150720
  Serious: Yes (Death, Other)
  Sender: FDA-Public Use
  Company Number: US-GLAXOSMITHKLINE-A1085550A

PATIENT
  Sex: Female
  Weight: 45.35 kg

DRUGS (1)
  1. TYKERB [Suspect]
     Active Substance: LAPATINIB DITOSYLATE
     Indication: BREAST CANCER
     Dosage: 250 MG TABLET TAKE 5 TABLETS DAILY OR 1250 MG
     Route: 065

REACTIONS (4)
  - Respiratory distress [Fatal]
  - Disease progression [Fatal]
  - Drug ineffective [Unknown]
  - Diarrhoea [Unknown]
